FAERS Safety Report 16680178 (Version 1)
Quarter: 2019Q3

REPORT INFORMATION
  Report Type: Spontaneous
  Country: SE (occurrence: SE)
  Receive Date: 20190807
  Receipt Date: 20190807
  Transmission Date: 20191004
  Serious: Yes (Life-Threatening)
  Sender: FDA-Public Use
  Company Number: PHHY2019SE182688

PATIENT
  Age: 68 Year
  Sex: Male

DRUGS (1)
  1. GEAVIR [Suspect]
     Active Substance: ACYCLOVIR
     Indication: HERPES SIMPLEX MENINGITIS
     Dosage: 3 G (MG/KG), QD
     Route: 042
     Dates: start: 20190703

REACTIONS (4)
  - Toxicity to various agents [Recovered/Resolved]
  - Acute psychosis [Recovered/Resolved]
  - Acute kidney injury [Recovered/Resolved]
  - Agitation [Recovered/Resolved]

NARRATIVE: CASE EVENT DATE: 20190705
